FAERS Safety Report 11595871 (Version 1)
Quarter: 2015Q4

REPORT INFORMATION
  Report Type: Spontaneous
  Country: ES (occurrence: None)
  Receive Date: 20151002
  Receipt Date: 20151002
  Transmission Date: 20160304
  Serious: Yes (Hospitalization)
  Sender: FDA-Public Use
  Company Number: 2015PL000212

PATIENT
  Age: 35 Year
  Sex: Male

DRUGS (4)
  1. ALLOPURINOL. [Suspect]
     Active Substance: ALLOPURINOL
     Indication: HYPERURICAEMIA
  2. TESTOSTERONE. [Concomitant]
     Active Substance: TESTOSTERONE
  3. HYDROCORTISONE. [Concomitant]
     Active Substance: HYDROCORTISONE
  4. L-THYROXINE [Concomitant]
     Active Substance: LEVOTHYROXINE

REACTIONS (6)
  - Dermatitis exfoliative [None]
  - White blood cell disorder [None]
  - Splenomegaly [None]
  - Face oedema [None]
  - Drug reaction with eosinophilia and systemic symptoms [None]
  - Conjunctival hyperaemia [None]
